FAERS Safety Report 23105389 (Version 1)
Quarter: 2023Q4

REPORT INFORMATION
  Report Type: Report from Study
  Country: CN (occurrence: CN)
  Receive Date: 20231025
  Receipt Date: 20231025
  Transmission Date: 20240110
  Serious: Yes (Hospitalization, Other)
  Sender: FDA-Public Use
  Company Number: CN-Eisai-EC-2023-151210

PATIENT
  Age: 38 Year
  Sex: Male

DRUGS (8)
  1. LENVATINIB [Suspect]
     Active Substance: LENVATINIB
     Indication: Hepatobiliary cancer
     Route: 048
     Dates: start: 20230607, end: 202308
  2. VOLRUSTOMIG [Suspect]
     Active Substance: VOLRUSTOMIG
     Indication: Hepatobiliary cancer
     Route: 042
     Dates: start: 20230607, end: 20230808
  3. ENTECAVIR [Concomitant]
     Active Substance: ENTECAVIR
     Route: 048
  4. TENOFOVIR ALAFENAMIDE FUMARATE [Concomitant]
     Active Substance: TENOFOVIR ALAFENAMIDE FUMARATE
     Route: 048
  5. COMPOUND GLYCYRRHIZIN [Concomitant]
     Route: 048
  6. REDUCED GLUTATHIONE [Concomitant]
     Route: 048
  7. BICYCLOL [Concomitant]
     Active Substance: BICYCLOL
     Route: 048
  8. OLMESARTAN MEDOXOMIL [Concomitant]
     Active Substance: OLMESARTAN MEDOXOMIL
     Route: 048

REACTIONS (1)
  - Drug-induced liver injury [Recovering/Resolving]

NARRATIVE: CASE EVENT DATE: 20230822
